FAERS Safety Report 7386956-6 (Version None)
Quarter: 2011Q1

REPORT INFORMATION
  Report Type: 
  Country: None (occurrence: None)
  Receive Date: 20110331
  Receipt Date: 20110328
  Transmission Date: 20110831
  Serious: Yes (Death, Hospitalization)
  Sender: FDA-Public Use
  Company Number: CA-PFIZER INC-2011060259

PATIENT
  Age: 75 Year
  Sex: Male
  Weight: 80.8 kg

DRUGS (6)
  1. DILTIAZEM [Concomitant]
     Dosage: 120 MG, 2X/DAY
     Dates: end: 20110317
  2. LANOXIN [Concomitant]
     Dosage: 0.125 MG, 1X/DAY
     Dates: start: 20100101
  3. ACETAMINOPHEN [Concomitant]
     Indication: PAIN
     Dosage: UNK
     Route: 048
  4. SUTENT [Suspect]
     Indication: PROSTATE CANCER
     Dosage: 50 MG, 1X/DAY
     Dates: start: 20110303, end: 20110317
  5. FLOMAX [Concomitant]
     Indication: PROSTATIC DISORDER
     Dosage: 0.4 MG, 1X/DAY
     Dates: start: 20090101
  6. WARFARIN [Concomitant]
     Dosage: 1.5 MG, 1X/DAY
     Dates: start: 20110101

REACTIONS (2)
  - HEPATITIS FULMINANT [None]
  - DEHYDRATION [None]
